FAERS Safety Report 6381387-X (Version None)
Quarter: 2009Q3

REPORT INFORMATION
  Report Type: 
  Country: None (occurrence: None)
  Receive Date: 20090924
  Receipt Date: 20090911
  Transmission Date: 20100115
  Serious: Yes (Other)
  Sender: FDA-Public Use
  Company Number: 1000008983

PATIENT
  Age: 78 Year
  Sex: Female

DRUGS (2)
  1. MEMANTINE HCL [Suspect]
  2. MEMANTINE HCL [Suspect]
     Dates: start: 20080901

REACTIONS (3)
  - GASTRIC DISORDER [None]
  - MALLORY-WEISS SYNDROME [None]
  - VOMITING [None]
